FAERS Safety Report 5787453-1 (Version None)
Quarter: 2008Q2

REPORT INFORMATION
  Report Type: 
  Country: None (occurrence: None)
  Receive Date: 20080625
  Receipt Date: 20080616
  Transmission Date: 20081010
  Serious: Yes (Death)
  Sender: FDA-Public Use
  Company Number: JP-TEVA-173143ISR

PATIENT
  Age: 2 Year
  Sex: Female

DRUGS (5)
  1. CISPLATIN [Suspect]
     Indication: YOLK SAC TUMOUR SITE UNSPECIFIED
  2. DOXORUBICIN HYDROCHLORIDE [Suspect]
     Indication: YOLK SAC TUMOUR SITE UNSPECIFIED
  3. DACTINOMYCIN [Suspect]
     Indication: YOLK SAC TUMOUR SITE UNSPECIFIED
  4. CYCLOPHOSPHAMIDE [Suspect]
     Indication: YOLK SAC TUMOUR SITE UNSPECIFIED
  5. VINCRISTINE SULFATE [Suspect]
     Indication: YOLK SAC TUMOUR SITE UNSPECIFIED

REACTIONS (2)
  - CARDIAC FAILURE [None]
  - CARDIOMYOPATHY [None]
